FAERS Safety Report 22097365 (Version 8)
Quarter: 2023Q2

REPORT INFORMATION
  Report Type: Report from Study
  Country: NL (occurrence: NL)
  Receive Date: 20230315
  Receipt Date: 20230526
  Transmission Date: 20230722
  Serious: Yes (Death)
  Sender: FDA-Public Use
  Company Number: NL-ASTELLAS-2023US008201

PATIENT
  Age: 65 Year
  Sex: Female
  Weight: 45.2 kg

DRUGS (3)
  1. ENFORTUMAB VEDOTIN [Suspect]
     Active Substance: ENFORTUMAB VEDOTIN
     Indication: Transitional cell carcinoma
     Dosage: 1.25 MG/KG, CYCLIC (ON DAYS 1 AND 8 OF EVERY 3-WEEK CYCLE)
     Route: 042
     Dates: start: 20220805
  2. ENFORTUMAB VEDOTIN [Suspect]
     Active Substance: ENFORTUMAB VEDOTIN
     Dosage: 1 MG/KG, CYCLIC (ON DAYS 1 AND 8 OF EVERY 3-WEEK CYCLE )
     Route: 042
  3. PEMBROLIZUMAB [Suspect]
     Active Substance: PEMBROLIZUMAB
     Indication: Transitional cell carcinoma
     Dosage: 200 MG, CYCLIC (ON DAY 1 OF EACH 3-WEEK CYCLE)
     Route: 042
     Dates: start: 20220805

REACTIONS (1)
  - Diarrhoea [Fatal]

NARRATIVE: CASE EVENT DATE: 20230306
